FAERS Safety Report 4926073-5 (Version None)
Quarter: 2006Q1

REPORT INFORMATION
  Report Type: 
  Country: None (occurrence: None)
  Receive Date: 20060228
  Receipt Date: 20050809
  Transmission Date: 20060701
  Serious: No
  Sender: FDA-Public Use
  Company Number: US-GLAXOSMITHKLINE-A0569532A

PATIENT
  Age: 35 Year
  Sex: Female

DRUGS (4)
  1. LAMICTAL [Suspect]
     Indication: BIPOLAR DISORDER
     Dosage: 25MG PER DAY
     Route: 048
     Dates: start: 20050804
  2. SUN BATH PROTECTIVE TANNING LOTION [Suspect]
     Route: 061
  3. KLONOPIN [Concomitant]
  4. FOLIC ACID [Concomitant]

REACTIONS (3)
  - CHOKING SENSATION [None]
  - FEELING HOT [None]
  - RASH [None]
